FAERS Safety Report 15319674 (Version 3)
Quarter: 2019Q1

REPORT INFORMATION
  Report Type: Spontaneous
  Country: DE (occurrence: DE)
  Receive Date: 20180827
  Receipt Date: 20190112
  Transmission Date: 20190417
  Serious: Yes (Hospitalization, Other)
  Sender: FDA-Public Use
  Company Number: DE-DRREDDYS-USA/GER/18/0103438

PATIENT
  Age: 46 Year
  Sex: Male

DRUGS (13)
  1. VENLAFAXINE [Suspect]
     Active Substance: VENLAFAXINE HYDROCHLORIDE
  2. RISPERIDONE. [Suspect]
     Active Substance: RISPERIDONE
     Indication: THINKING ABNORMAL
     Route: 065
  3. PIPAMPERONE [Suspect]
     Active Substance: PIPAMPERONE
     Indication: PRODUCT USED FOR UNKNOWN INDICATION
     Dosage: PRN AND BEING TAKEN AROUND THE TIME OF THE ADR.
     Route: 065
     Dates: start: 20160820, end: 20160920
  4. PIPAMPERONE [Suspect]
     Active Substance: PIPAMPERONE
     Dosage: BEING TAKEN AROUND THE TIME OF THE ADR
     Route: 048
     Dates: start: 20160820, end: 20160902
  5. LORAZEPAM. [Suspect]
     Active Substance: LORAZEPAM
     Indication: SUICIDAL IDEATION
     Dosage: 1-3 MG/DAILY, REDUCED DOSE, AT NIGHT, (BY THE TIME OF ONSET OF THE ADVERSE DRUG REACTION)
     Route: 065
  6. LORAZEPAM. [Suspect]
     Active Substance: LORAZEPAM
     Dosage: AT NIGHT (BY THE TIME OF ONSET OF THE ADVERSE DRUG REACTION)
  7. SILODOSIN. [Concomitant]
     Active Substance: SILODOSIN
     Indication: BENIGN PROSTATIC HYPERPLASIA
     Route: 048
  8. RAMIPRIL. [Suspect]
     Active Substance: RAMIPRIL
     Indication: PRODUCT USED FOR UNKNOWN INDICATION
     Route: 065
  9. AMLODIPINE [Concomitant]
     Active Substance: AMLODIPINE BESYLATE
     Indication: PRODUCT USED FOR UNKNOWN INDICATION
     Route: 065
  10. HYDROCHLOROTHIAZIDE. [Concomitant]
     Active Substance: HYDROCHLOROTHIAZIDE
     Indication: PRODUCT USED FOR UNKNOWN INDICATION
     Route: 065
  11. VENLAFAXINE [Suspect]
     Active Substance: VENLAFAXINE HYDROCHLORIDE
     Indication: DEPRESSIVE SYMPTOM
     Dosage: FINAL DOSE
     Route: 048
  12. RISPERIDONE. [Suspect]
     Active Substance: RISPERIDONE
     Indication: SUICIDAL IDEATION
  13. LORAZEPAM. [Suspect]
     Active Substance: LORAZEPAM
     Indication: THINKING ABNORMAL
     Dosage: REDUCED DOSE
     Route: 065

REACTIONS (3)
  - Withdrawal syndrome [Recovered/Resolved]
  - Multiple drug therapy [Recovered/Resolved]
  - Myoclonus [Recovered/Resolved]

NARRATIVE: CASE EVENT DATE: 20160901
